FAERS Safety Report 13578057 (Version 5)
Quarter: 2019Q2

REPORT INFORMATION
  Report Type: Report from Study
  Country: US (occurrence: US)
  Receive Date: 20170524
  Receipt Date: 20190401
  Transmission Date: 20190711
  Serious: Yes (Death, Life-Threatening, Hospitalization)
  Sender: FDA-Public Use
  Company Number: US-ACTELION-A-US2015-122644

PATIENT
  Age: 77 Year
  Sex: Female

DRUGS (31)
  1. ATORVASTATIN CALCIUM. [Concomitant]
     Active Substance: ATORVASTATIN CALCIUM
     Dosage: 40 MG, QD
  2. TRISPEC [Concomitant]
  3. OPSUMIT [Suspect]
     Active Substance: MACITENTAN
     Indication: PULMONARY ARTERIAL HYPERTENSION
     Dosage: 10 MG, QD
     Route: 048
     Dates: start: 20150320, end: 20190311
  4. METFORMIN HCL [Concomitant]
     Active Substance: METFORMIN HYDROCHLORIDE
     Dosage: 500 MG, BID
  5. NEBUSOL [Concomitant]
     Dosage: UNK 3%
  6. PREDNISONE. [Concomitant]
     Active Substance: PREDNISONE
  7. CEFDINIR. [Concomitant]
     Active Substance: CEFDINIR
  8. LATANOPROST. [Concomitant]
     Active Substance: LATANOPROST
  9. ELIQUIS [Concomitant]
     Active Substance: APIXABAN
  10. TOPROL XL [Concomitant]
     Active Substance: METOPROLOL SUCCINATE
  11. LASIX [Concomitant]
     Active Substance: FUROSEMIDE
     Dosage: 20 MG, QD
  12. CALCIUM +D3 [Concomitant]
     Active Substance: CALCIUM\CHOLECALCIFEROL
     Dosage: 600-40-500 MG-M
  13. SYNTHROID [Concomitant]
     Active Substance: LEVOTHYROXINE SODIUM
     Dosage: 50 MCG, UNK
  14. FERROUS SULFATE. [Concomitant]
     Active Substance: FERROUS SULFATE
     Dosage: 325 MG, QD
  15. IPRATROPIUM BROMIDE. [Concomitant]
     Active Substance: IPRATROPIUM BROMIDE
     Dosage: UNK 0.02%
  16. OPSUMIT [Suspect]
     Active Substance: MACITENTAN
     Dosage: 10 MG, QD
     Route: 048
  17. ZYRTEC [Concomitant]
     Active Substance: CETIRIZINE HYDROCHLORIDE
     Dosage: 10 MG, PRN
  18. OMEGA 3 COMPLETE [Concomitant]
  19. KLONOPIN [Concomitant]
     Active Substance: CLONAZEPAM
     Dosage: 0.5 MG, UNK
  20. ATENOLOL. [Concomitant]
     Active Substance: ATENOLOL
     Dosage: 100 MG, QHS
  21. ASPIRIN E.C [Concomitant]
     Active Substance: ASPIRIN
     Dosage: 81 MG, QD
  22. NEURONTIN [Concomitant]
     Active Substance: GABAPENTIN
     Dosage: 100 MG, QHS
  23. ZETIA [Concomitant]
     Active Substance: EZETIMIBE
     Dosage: 10 MG, QD
  24. IMDUR [Concomitant]
     Active Substance: ISOSORBIDE MONONITRATE
     Dosage: 60 MG, QD
  25. GLUCOSAMINE + FISH OIL [Concomitant]
     Dosage: 500-400-60-40 M
  26. HORSE CHESTNUT EXTRACT [Concomitant]
     Active Substance: HORSE CHESTNUT
     Dosage: 300 MG, QD
  27. NEBUSAL [Concomitant]
     Active Substance: SODIUM CHLORIDE
  28. LOSARTAN POTASSIUM. [Concomitant]
     Active Substance: LOSARTAN POTASSIUM
     Dosage: 100 MG, QD
  29. VITAMIN D3 [Concomitant]
     Active Substance: CHOLECALCIFEROL
     Dosage: 5000 U, UNK
  30. ALDACTONE [Concomitant]
     Active Substance: SPIRONOLACTONE
  31. ILEVRO [Concomitant]
     Active Substance: NEPAFENAC

REACTIONS (25)
  - Death [Fatal]
  - Fatigue [Recovered/Resolved]
  - Memory impairment [Not Recovered/Not Resolved]
  - Oedema peripheral [Not Recovered/Not Resolved]
  - Pyrexia [Recovered/Resolved]
  - Respiratory failure [Recovered/Resolved]
  - Cardiac failure congestive [Recovering/Resolving]
  - Insomnia [Not Recovered/Not Resolved]
  - Disturbance in attention [Not Recovered/Not Resolved]
  - Influenza like illness [Recovered/Resolved]
  - Sneezing [Recovered/Resolved]
  - Headache [Recovered/Resolved]
  - Rhinorrhoea [Recovered/Resolved]
  - Product dose omission [Unknown]
  - Dysphonia [Not Recovered/Not Resolved]
  - Cardiac pacemaker insertion [Recovering/Resolving]
  - Eyelid ptosis [Not Recovered/Not Resolved]
  - Asthma [Not Recovered/Not Resolved]
  - Cough [Not Recovered/Not Resolved]
  - Chest discomfort [Not Recovered/Not Resolved]
  - Productive cough [Recovered/Resolved]
  - Pain [Recovered/Resolved]
  - Restless legs syndrome [Unknown]
  - Respiratory distress [Recovering/Resolving]
  - Nasal congestion [Recovered/Resolved]

NARRATIVE: CASE EVENT DATE: 20150717
